FAERS Safety Report 21524535 (Version 2)
Quarter: 2024Q4

REPORT INFORMATION
  Report Type: Spontaneous
  Country: US (occurrence: US)
  Receive Date: 20221030
  Receipt Date: 20241009
  Transmission Date: 20250114
  Serious: No
  Sender: SANOFI AVENTIS
  Company Number: US-SA-SAC20221027000225

PATIENT
  Age: 53 Year
  Sex: Male

DRUGS (4)
  1. DUPIXENT [Suspect]
     Active Substance: DUPILUMAB
     Indication: Asthma
     Dosage: 300 MG, QOW
     Route: 058
     Dates: start: 20220601
  2. OXYCODONE [Concomitant]
     Active Substance: OXYCODONE
  3. GABAPENTIN [Concomitant]
     Active Substance: GABAPENTIN
  4. ACETAMINOPHEN [Concomitant]
     Active Substance: ACETAMINOPHEN

REACTIONS (2)
  - Impaired quality of life [Recovered/Resolved]
  - Impaired quality of life [Unknown]

NARRATIVE: CASE EVENT DATE: 20221021
